FAERS Safety Report 23891514 (Version 5)
Quarter: 2025Q1

REPORT INFORMATION
  Report Type: Report from Study
  Country: US (occurrence: US)
  Receive Date: 20240523
  Receipt Date: 20250228
  Transmission Date: 20250409
  Serious: Yes (Other)
  Sender: TAKEDA
  Company Number: US-TAKEDA-2024TUS050783

PATIENT
  Age: 46 Year
  Sex: Female

DRUGS (2)
  1. HUMAN IMMUNOGLOBULIN G [Suspect]
     Active Substance: HUMAN IMMUNOGLOBULIN G
     Indication: Primary immunodeficiency syndrome
  2. HUMAN IMMUNOGLOBULIN G [Suspect]
     Active Substance: HUMAN IMMUNOGLOBULIN G
     Indication: Hypogammaglobulinaemia

REACTIONS (12)
  - Systemic lupus erythematosus [Unknown]
  - Nephrolithiasis [Unknown]
  - Meningitis aseptic [Unknown]
  - Incorrect drug administration rate [Unknown]
  - Injection site oedema [Unknown]
  - Injection site discharge [Unknown]
  - Herpes zoster [Unknown]
  - Peripheral swelling [Unknown]
  - Skin ulcer [Unknown]
  - Urinary tract infection [Unknown]
  - Lymphadenopathy [Unknown]
  - Fatigue [Not Recovered/Not Resolved]

NARRATIVE: CASE EVENT DATE: 20250121
